FAERS Safety Report 6466498-2 (Version None)
Quarter: 2009Q4

REPORT INFORMATION
  Report Type: 
  Country: None (occurrence: None)
  Receive Date: 20091118
  Receipt Date: 20090702
  Transmission Date: 20100525
  Serious: Yes (Hospitalization)
  Sender: FDA-Public Use
  Company Number: 2009BI020634

PATIENT
  Age: 38 Year
  Sex: Female

DRUGS (1)
  1. TYSABRI [Suspect]
     Indication: MULTIPLE SCLEROSIS
     Dosage: 300 MG;QM; IV
     Route: 042
     Dates: start: 20080215

REACTIONS (4)
  - ANAEMIA [None]
  - BONE PAIN [None]
  - MULTIPLE SCLEROSIS RELAPSE [None]
  - RESPIRATORY TRACT INFECTION [None]
